FAERS Safety Report 20159438 (Version 1)
Quarter: 2021Q4

REPORT INFORMATION
  Report Type: Spontaneous
  Country: PL (occurrence: PL)
  Receive Date: 20211208
  Receipt Date: 20211208
  Transmission Date: 20220303
  Serious: Yes (Hospitalization)
  Sender: FDA-Public Use
  Company Number: None

PATIENT
  Age: 67 Year
  Sex: Male
  Weight: 71 kg

DRUGS (6)
  1. PACLITAXEL [Suspect]
     Active Substance: PACLITAXEL
     Indication: Malignant respiratory tract neoplasm
     Dosage: 175 MG/M2
     Route: 041
     Dates: start: 20210209, end: 20210209
  2. METOPROLOL SUCCINATE [Concomitant]
     Active Substance: METOPROLOL SUCCINATE
     Indication: Cardiac failure
     Dosage: DOSE: 1X47.5MG. THERAPY ONGOING
     Route: 048
     Dates: start: 20210209
  3. DOXAZOSIN MESYLATE [Concomitant]
     Active Substance: DOXAZOSIN MESYLATE
     Indication: Benign prostatic hyperplasia
     Dosage: DOSE: 1X4 MG. THERAPY ONGOING
     Route: 048
  4. FORMOTEROL FUMARATE [Concomitant]
     Active Substance: FORMOTEROL FUMARATE
     Indication: Chronic obstructive pulmonary disease
     Dosage: DOSE: 1X1INH. THERAPY ONGOING
     Route: 055
  5. GLYCOPYRRONIUM\INDACATEROL [Concomitant]
     Active Substance: GLYCOPYRRONIUM\INDACATEROL
     Indication: Chronic obstructive pulmonary disease
     Dosage: DOSE: 2X1INH. THERAPY ONGOING.
     Route: 055
  6. Theospirex ret [Concomitant]
     Indication: Chronic obstructive pulmonary disease
     Dosage: DOSE: 2X30 MG. THERAPY ONGOING
     Route: 048

REACTIONS (3)
  - Abdominal pain upper [Recovered/Resolved]
  - Angina pectoris [Recovered/Resolved]
  - Haemoptysis [Recovered/Resolved]

NARRATIVE: CASE EVENT DATE: 20210209
